FAERS Safety Report 5384767-4 (Version None)
Quarter: 2007Q3

REPORT INFORMATION
  Report Type: 
  Country: None (occurrence: None)
  Receive Date: 20070706
  Receipt Date: 20070531
  Transmission Date: 20080115
  Serious: No
  Sender: FDA-Public Use
  Company Number: PHEH2007US07143

PATIENT
  Age: 62 Year
  Sex: Female

DRUGS (2)
  1. TEKTURNA [Suspect]
     Indication: HYPERTENSION
     Dosage: 150 MG, QD, 300 MG, QD, ORAL
     Route: 048
     Dates: start: 20070423
  2. TEKTURNA [Suspect]
     Indication: HYPERTENSION
     Dosage: 150 MG, QD, 300 MG, QD, ORAL
     Route: 048
     Dates: start: 20070507

REACTIONS (1)
  - EYE HAEMORRHAGE [None]
